FAERS Safety Report 8359547-8 (Version None)
Quarter: 2012Q2

REPORT INFORMATION
  Report Type: 
  Country: None (occurrence: None)
  Receive Date: 20120515
  Receipt Date: 20120507
  Transmission Date: 20120825
  Serious: Yes (Hospitalization, Other)
  Sender: FDA-Public Use
  Company Number: JP-B.I. PHARMACEUTICALS,INC./RIDGEFIELD-2012-BP-07450NB

PATIENT
  Sex: Male
  Weight: 64 kg

DRUGS (2)
  1. PRADAXA [Suspect]
     Indication: CEREBROVASCULAR ACCIDENT PROPHYLAXIS
     Dosage: 220 MG
     Route: 048
     Dates: end: 20120423
  2. WARFARIN SODIUM [Concomitant]
     Dosage: 1.5 MG
     Route: 048
     Dates: start: 20120418

REACTIONS (3)
  - EPILEPSY [None]
  - CEREBRAL INFARCTION [None]
  - DRUG INEFFECTIVE [None]
